FAERS Safety Report 11163657 (Version 3)
Quarter: 2015Q3

REPORT INFORMATION
  Report Type: Spontaneous
  Country: DE (occurrence: DE)
  Receive Date: 20150604
  Receipt Date: 20150721
  Transmission Date: 20151125
  Serious: Yes (Hospitalization, Other)
  Sender: FDA-Public Use
  Company Number: DE-PFIZER INC-2015157648

PATIENT
  Age: 70 Year
  Sex: Male

DRUGS (10)
  1. METOPROLOL [Concomitant]
     Active Substance: METOPROLOL
     Dosage: 47.5MG (A HALF IN THE MORNING AND A HALF IN THE EVENING)
  2. DOXEPIN [Concomitant]
     Active Substance: DOXEPIN
     Dosage: 50 MG (A HALF AT NIGHT)
  3. LYRICA [Suspect]
     Active Substance: PREGABALIN
     Indication: PAIN
  4. ASPIRIN. [Concomitant]
     Active Substance: ASPIRIN
     Dosage: 100 MG, 1X/DAY IN THE MORNING
  5. TORASEMID [Concomitant]
     Active Substance: TORSEMIDE
     Dosage: 10 MG, 1X/DAY IN THE MORNING
  6. RAMIPRIL COMP [Concomitant]
     Active Substance: HYDROCHLOROTHIAZIDE\RAMIPRIL
     Dosage: 5/25 0.5 DF, 1X/DAY IN THE MORNING
  7. LYRICA [Suspect]
     Active Substance: PREGABALIN
     Indication: POLYNEUROPATHY
     Dosage: 100 MG, 2X/DAY
     Dates: start: 20150218, end: 20150424
  8. PANTOPRAZOLE SODIUM. [Concomitant]
     Active Substance: PANTOPRAZOLE SODIUM
     Dosage: 40 MG, 1X/DAY
  9. SIMVA [Concomitant]
     Dosage: 20 MG, 1X/DAY IN THE EVENING
  10. PALEXIA [Concomitant]
     Active Substance: TAPENTADOL HYDROCHLORIDE
     Indication: POLYNEUROPATHY
     Dosage: 50MG 1X IN THE MORNING AND 100MG 1X IN THE EVENING

REACTIONS (3)
  - Pancreatitis [Recovered/Resolved]
  - Blood pressure increased [Unknown]
  - Coronary artery stenosis [Unknown]

NARRATIVE: CASE EVENT DATE: 20150424
